FAERS Safety Report 9266049 (Version 2)
Quarter: 2013Q2

REPORT INFORMATION
  Report Type: Spontaneous
  Country: US (occurrence: US)
  Receive Date: 20130501
  Receipt Date: 20130521
  Transmission Date: 20140414
  Serious: Yes (Hospitalization)
  Sender: FDA-Public Use
  Company Number: US-B.I. PHARMACEUTICALS,INC./RIDGEFIELD-2013-BI-11929BP

PATIENT
  Age: 66 Year
  Sex: Male

DRUGS (18)
  1. PRADAXA [Suspect]
     Indication: ATRIAL FIBRILLATION
     Dosage: 300 MG
     Route: 048
  2. VITAMIN B 12 [Concomitant]
     Route: 048
  3. VITAMIN B 6 [Concomitant]
     Route: 048
  4. PROVIGIL [Concomitant]
     Indication: MYASTHENIA GRAVIS
     Dosage: 200 MG
     Route: 048
  5. ASPIRIN [Concomitant]
     Route: 048
  6. LISINOPRIL [Concomitant]
     Route: 048
  7. PROTONIX [Concomitant]
     Route: 048
  8. TUMS [Concomitant]
     Route: 048
  9. PREDNISONE [Concomitant]
     Dosage: 15 MG
     Route: 048
  10. SERTRALINE [Concomitant]
     Route: 048
  11. VENLAFAXINE [Concomitant]
     Route: 048
  12. HYDROMORPHONE [Concomitant]
     Route: 048
  13. VITAMIN B 1 [Concomitant]
     Route: 048
  14. FOLIC ACID [Concomitant]
     Route: 048
  15. METOPROLOL [Concomitant]
     Route: 048
  16. TAMSULOSIN [Concomitant]
     Route: 048
  17. CELLCEPT [Concomitant]
     Dosage: 3000 MG
     Route: 048
  18. CRESTOR [Concomitant]
     Route: 048

REACTIONS (3)
  - Rib fracture [Not Recovered/Not Resolved]
  - Fall [Recovered/Resolved]
  - Ligament sprain [Recovered/Resolved]
